FAERS Safety Report 10005227 (Version 1)
Quarter: 2014Q1

REPORT INFORMATION
  Report Type: Spontaneous
  Country: MX (occurrence: MX)
  Receive Date: 20140312
  Receipt Date: 20140312
  Transmission Date: 20141002
  Serious: Yes (Disabling)
  Sender: FDA-Public Use
  Company Number: PHHY2014MX028141

PATIENT
  Age: 59 Year
  Sex: Female

DRUGS (5)
  1. ONBREZ [Suspect]
     Indication: OBSTRUCTIVE AIRWAYS DISORDER
     Dosage: 150 UG, DAILY
     Route: 055
     Dates: start: 201212
  2. ONBREZ [Suspect]
     Indication: OFF LABEL USE
     Dosage: 300 UG, DAILY
     Route: 055
  3. ONBREZ [Suspect]
     Dosage: 150 UG, DAILY
     Route: 055
  4. COMBIVENT [Concomitant]
     Indication: OXYGEN CONSUMPTION DECREASED
     Dosage: UNK DAILY
     Dates: start: 2012, end: 2012
  5. SPIRIVA [Concomitant]
     Indication: OXYGEN CONSUMPTION DECREASED
     Dosage: UNK, DAILY
     Dates: start: 2012, end: 2012

REACTIONS (6)
  - Syringomyelia [Unknown]
  - Abasia [Unknown]
  - Concomitant disease progression [Unknown]
  - Cyanosis [Unknown]
  - Dyspnoea [Unknown]
  - Fatigue [Unknown]
